FAERS Safety Report 22882627 (Version 3)
Quarter: 2023Q4

REPORT INFORMATION
  Report Type: Report from Study
  Country: US (occurrence: US)
  Receive Date: 20230830
  Receipt Date: 20231006
  Transmission Date: 20240110
  Serious: Yes (Hospitalization, Other)
  Sender: FDA-Public Use
  Company Number: US-GILEAD-2023-0640890

PATIENT
  Age: 46 Year
  Sex: Male
  Weight: 75.8 kg

DRUGS (9)
  1. SACITUZUMAB GOVITECAN-HZIY [Suspect]
     Active Substance: SACITUZUMAB GOVITECAN-HZIY
     Indication: Hormone receptor positive HER2 negative breast cancer
     Dosage: 10 MG/KG
     Route: 042
     Dates: start: 20230609, end: 20230811
  2. PEMBROLIZUMAB [Suspect]
     Active Substance: PEMBROLIZUMAB
     Indication: Hormone receptor positive HER2 negative breast cancer
     Dosage: 200 MG
     Route: 042
     Dates: start: 20230609, end: 20230811
  3. NEULASTA [Concomitant]
     Active Substance: PEGFILGRASTIM
     Dosage: UNK
     Dates: start: 20230619
  4. LISINOPRIL [Concomitant]
     Active Substance: LISINOPRIL
  5. ONDANSETRON [Concomitant]
     Active Substance: ONDANSETRON
     Dosage: UNK
     Dates: start: 20230512
  6. LIDOCAINE [Concomitant]
     Active Substance: LIDOCAINE
     Dosage: UNK
     Dates: start: 20230630
  7. HYDROCORTISONE [Concomitant]
     Active Substance: HYDROCORTISONE
     Dosage: UNK
     Dates: start: 20230616
  8. HYDROCHLOROTHIAZIDE [Concomitant]
     Active Substance: HYDROCHLOROTHIAZIDE
  9. MAGNESIUM OXIDE [Concomitant]
     Active Substance: MAGNESIUM OXIDE
     Dosage: UNK
     Dates: start: 20230819

REACTIONS (5)
  - Osteomyelitis [Unknown]
  - Joint swelling [Unknown]
  - Infection [Unknown]
  - Pain [Unknown]
  - Pain in extremity [Unknown]

NARRATIVE: CASE EVENT DATE: 20230818
